FAERS Safety Report 4762071-2 (Version None)
Quarter: 2005Q3

REPORT INFORMATION
  Report Type: 
  Country: None (occurrence: None)
  Receive Date: 20050831
  Receipt Date: 20050526
  Transmission Date: 20060218
  Serious: No
  Sender: FDA-Public Use
  Company Number: PHEH2005US05982

PATIENT
  Age: 69 Year
  Sex: Female

DRUGS (8)
  1. ENABLEX [Suspect]
     Indication: HYPERTONIC BLADDER
     Dosage: 7.5 MG, QD
     Dates: start: 20050518
  2. LIPITOR [Concomitant]
  3. VALTREX [Concomitant]
  4. RISPERDAL [Concomitant]
  5. ENALAPRIL MALEATE [Concomitant]
  6. NEXIUM [Concomitant]
  7. PAROXETINE HCL [Concomitant]
  8. DARVOCET-N 100 [Concomitant]

REACTIONS (2)
  - DRUG INEFFECTIVE [None]
  - DRY MOUTH [None]
